FAERS Safety Report 8151977-2 (Version None)
Quarter: 2012Q1

REPORT INFORMATION
  Report Type: 
  Country: None (occurrence: None)
  Receive Date: 20120221
  Receipt Date: 20120216
  Transmission Date: 20120608
  Serious: No
  Sender: FDA-Public Use
  Company Number: US-PFIZER INC-2012042867

PATIENT
  Sex: Female
  Weight: 77.098 kg

DRUGS (6)
  1. COREG [Interacting]
     Indication: HYPERTENSION
     Dosage: UNK
     Dates: start: 20120101, end: 20120101
  2. PRAVACHOL [Concomitant]
     Indication: BLOOD CHOLESTEROL INCREASED
     Dosage: UNK
  3. NARDIL [Suspect]
     Indication: PANIC ATTACK
     Dosage: 15 MG, 3X/DAY
     Route: 048
     Dates: start: 19820101
  4. NARDIL [Interacting]
     Dosage: 15 MG, 1X/DAY
     Route: 048
  5. NARDIL [Interacting]
     Dosage: 15 MG, 2X/DAY
     Route: 048
  6. ACETYLSALICYLIC ACID [Concomitant]
     Dosage: UNK

REACTIONS (2)
  - HYPERTENSION [None]
  - DRUG INTERACTION [None]
